FAERS Safety Report 17407147 (Version 1)
Quarter: 2020Q1

REPORT INFORMATION
  Report Type: Spontaneous
  Country: US (occurrence: US)
  Receive Date: 20200211
  Receipt Date: 20200211
  Transmission Date: 20200409
  Serious: Yes (Other)
  Sender: FDA-Public Use
  Company Number: None

PATIENT
  Age: 55 Year
  Sex: Male
  Weight: 95.4 kg

DRUGS (2)
  1. TYLENOL [Concomitant]
     Active Substance: ACETAMINOPHEN
  2. PRALUENT [Suspect]
     Active Substance: ALIROCUMAB
     Indication: BLOOD CHOLESTEROL INCREASED
     Dosage: ?          QUANTITY:2 INJECTION(S);OTHER FREQUENCY:EVERY 14 DAYS;OTHER ROUTE:STOMACH?
     Dates: start: 20200103, end: 20200209

REACTIONS (6)
  - Muscle spasms [None]
  - Oropharyngeal pain [None]
  - Influenza [None]
  - Diarrhoea [None]
  - Rhinorrhoea [None]
  - Myalgia [None]

NARRATIVE: CASE EVENT DATE: 20200105
